FAERS Safety Report 18517419 (Version 1)
Quarter: 2020Q4

REPORT INFORMATION
  Report Type: Spontaneous
  Country: CN (occurrence: CN)
  Receive Date: 20201118
  Receipt Date: 20201118
  Transmission Date: 20210114
  Serious: Yes (Life-Threatening)
  Sender: FDA-Public Use
  Company Number: CN-ROCHE-2715267

PATIENT
  Age: 74 Year
  Sex: Male

DRUGS (3)
  1. NEDAPLATIN [Concomitant]
     Active Substance: NEDAPLATIN
     Indication: SMALL CELL LUNG CANCER
  2. ETOPOSIDE. [Concomitant]
     Active Substance: ETOPOSIDE
     Indication: SMALL CELL LUNG CANCER
  3. TECENTRIQ [Suspect]
     Active Substance: ATEZOLIZUMAB
     Indication: SMALL CELL LUNG CANCER
     Route: 042

REACTIONS (2)
  - Anaemia [Recovering/Resolving]
  - Coma [Recovering/Resolving]
